FAERS Safety Report 9159827 (Version 2)
Quarter: 2013Q1

REPORT INFORMATION
  Report Type: Spontaneous
  Country: US (occurrence: None)
  Receive Date: 20130220
  Receipt Date: 20130228
  Transmission Date: 20140127
  Serious: Yes (Other)
  Sender: FDA-Public Use
  Company Number: JPI-P-029383

PATIENT
  Age: 33 Year
  Sex: Female

DRUGS (1)
  1. XYREM ?(500 MILLIGRAM/MILLILITERS, SOLUTION)(SODIUM OXYBATE) [Suspect]
     Indication: CATAPLEXY
     Dosage: 4.5 GM (2.25 GM, 2 IN 1 D)
     Route: 048
     Dates: start: 20100317

REACTIONS (9)
  - Tooth fracture [None]
  - Dysarthria [None]
  - Victim of sexual abuse [None]
  - Victim of crime [None]
  - Laceration [None]
  - Loss of consciousness [None]
  - Fracture [None]
  - Thermal burn [None]
  - Head injury [None]
